FAERS Safety Report 8799265 (Version 2)
Quarter: 2012Q4

REPORT INFORMATION
  Report Type: Spontaneous
  Country: PT (occurrence: None)
  Receive Date: 20120914
  Receipt Date: 20121231
  Transmission Date: 20130627
  Serious: Yes (Other)
  Sender: FDA-Public Use
  Company Number: 1404069

PATIENT
  Age: 62 Year
  Sex: Male
  Weight: 104 kg

DRUGS (5)
  1. OXALIPLATIN [Suspect]
     Indication: COLON NEOPLASIA
     Dosage: CYCLICAL
     Route: 042
     Dates: start: 20120724, end: 20120724
  2. CALCIUM FOLINATE [Concomitant]
  3. DEXAMETHASONE SODIUM PHOSPHATE [Concomitant]
  4. (FLUOROURACI L) [Concomitant]
  5. ONDANSETRON [Concomitant]

REACTIONS (3)
  - Respiratory arrest [None]
  - Erythema [None]
  - Throat irritation [None]
